FAERS Safety Report 20070027 (Version 1)
Quarter: 2021Q4

REPORT INFORMATION
  Report Type: Spontaneous
  Country: US (occurrence: US)
  Receive Date: 20211115
  Receipt Date: 20211115
  Transmission Date: 20220303
  Serious: Yes (Other)
  Sender: FDA-Public Use
  Company Number: US-BRISTOL-MYERS SQUIBB COMPANY-BMS-2017-092866

PATIENT
  Sex: Male

DRUGS (9)
  1. ABILIFY [Suspect]
     Active Substance: ARIPIPRAZOLE
     Indication: Bipolar disorder
     Dosage: 1 DF, UNK (1DF=5 MG/10 MG DAILY)
     Route: 065
     Dates: start: 200808
  2. HYDROMORPHONE [Concomitant]
     Active Substance: HYDROMORPHONE
     Indication: Product used for unknown indication
     Dosage: 2 MG, EVERY 4 HOURS
     Route: 048
  3. NAPROXEN [Concomitant]
     Active Substance: NAPROXEN
     Indication: Product used for unknown indication
     Dosage: 500 MG, BID
     Route: 048
  4. ONDANSETRON [Concomitant]
     Active Substance: ONDANSETRON
     Indication: Product used for unknown indication
     Dosage: 4 MG, EVERY 8 HOURS
     Route: 048
  5. BUPROPION [Concomitant]
     Active Substance: BUPROPION
     Indication: Product used for unknown indication
     Dosage: 300 MG, QD
     Route: 048
  6. TOPIRAMATE [Concomitant]
     Active Substance: TOPIRAMATE
     Indication: Product used for unknown indication
     Dosage: 50 MG, QD
     Route: 048
  7. TAMSULOSIN [Concomitant]
     Active Substance: TAMSULOSIN
     Indication: Product used for unknown indication
     Dosage: 0.4 MG, QD
     Route: 048
  8. HYDROCODONE [Concomitant]
     Active Substance: HYDROCODONE
     Indication: Product used for unknown indication
     Dosage: 5 MG/ APAP 325 MG, Q4H PRN
     Route: 048
  9. WELLBUTRIN [Concomitant]
     Active Substance: BUPROPION HYDROCHLORIDE
     Indication: Product used for unknown indication
     Dosage: UNK
     Route: 065

REACTIONS (35)
  - Nephrolithiasis [Unknown]
  - Labyrinthitis [Unknown]
  - Ureterolithiasis [Unknown]
  - Stress at work [Unknown]
  - Mood swings [Unknown]
  - Renal colic [Unknown]
  - Rhinitis allergic [Unknown]
  - Rhinorrhoea [Unknown]
  - Bronchitis [Unknown]
  - Influenza [Unknown]
  - Flank pain [Unknown]
  - Haematuria [Unknown]
  - Dysuria [Unknown]
  - Oropharyngeal pain [Unknown]
  - Rhinorrhoea [Unknown]
  - Cough [Unknown]
  - Upper respiratory tract infection [Unknown]
  - Nocturia [Unknown]
  - Back pain [Unknown]
  - Gastrooesophageal reflux disease [Unknown]
  - Muscle spasms [Unknown]
  - Pain in extremity [Unknown]
  - Irritability [Unknown]
  - Nasal congestion [Unknown]
  - Pyrexia [Unknown]
  - Pain [Unknown]
  - Anxiety [Unknown]
  - Dysphagia [Unknown]
  - Insomnia [Unknown]
  - Diarrhoea [Unknown]
  - Headache [Unknown]
  - Dizziness [Unknown]
  - Fatigue [Unknown]
  - Gambling disorder [Unknown]
  - Economic problem [Unknown]
